FAERS Safety Report 12192599 (Version 1)
Quarter: 2016Q1

REPORT INFORMATION
  Report Type: Spontaneous
  Country: FR (occurrence: FR)
  Receive Date: 20160318
  Receipt Date: 20160318
  Transmission Date: 20160526
  Serious: Yes (Hospitalization)
  Sender: FDA-Public Use
  Company Number: FR-PFIZER INC-2016159314

PATIENT
  Age: 76 Year
  Sex: Male

DRUGS (8)
  1. PERINDOPRIL [Suspect]
     Active Substance: PERINDOPRIL
     Route: 048
  2. FLUDEX-SR [Suspect]
     Active Substance: INDAPAMIDE
     Route: 048
     Dates: start: 20151207
  3. ATENOLOL. [Suspect]
     Active Substance: ATENOLOL
     Dosage: 50 MG, 2X/DAY
     Route: 048
     Dates: start: 2011
  4. INEXIUM /01479302/ [Suspect]
     Active Substance: ESOMEPRAZOLE MAGNESIUM
     Route: 048
  5. BACLOFEN. [Suspect]
     Active Substance: BACLOFEN
     Route: 048
     Dates: start: 2000, end: 20151215
  6. GLICLAZIDE [Suspect]
     Active Substance: GLICLAZIDE
     Route: 048
     Dates: end: 20151215
  7. KALEORID [Concomitant]
     Active Substance: POTASSIUM CHLORIDE
  8. XARELTO [Suspect]
     Active Substance: RIVAROXABAN
     Route: 048
     Dates: start: 20151207

REACTIONS (5)
  - Confusional state [None]
  - Toxicity to various agents [None]
  - Acute kidney injury [Recovered/Resolved]
  - Coma [None]
  - Overdose [None]

NARRATIVE: CASE EVENT DATE: 20151216
